FAERS Safety Report 8491344-5 (Version None)
Quarter: 2012Q3

REPORT INFORMATION
  Report Type: 
  Country: None (occurrence: None)
  Receive Date: 20120706
  Receipt Date: 20120628
  Transmission Date: 20120928
  Serious: Yes (Hospitalization, Other)
  Sender: FDA-Public Use
  Company Number: JP-ASTELLAS-2012US005903

PATIENT
  Sex: Male

DRUGS (22)
  1. GEMCITABINE HYDROCHLORIDE [Suspect]
     Dosage: 1000 MG/M2, UID/QD
     Route: 041
     Dates: start: 20120228, end: 20120228
  2. LOXONIN [Concomitant]
     Indication: PRODUCT USED FOR UNKNOWN INDICATION
     Dosage: 180 MG, UID/QD
     Route: 048
  3. OLMESARTAN MEDOXOMIL [Concomitant]
     Indication: PRODUCT USED FOR UNKNOWN INDICATION
     Dosage: 10 MG, UID/QD
     Route: 048
  4. PITAVASTATIN [Concomitant]
     Indication: PRODUCT USED FOR UNKNOWN INDICATION
     Dosage: 1 MG, UID/QD
     Route: 048
     Dates: end: 20120220
  5. OXYCONTIN [Concomitant]
     Indication: PRODUCT USED FOR UNKNOWN INDICATION
     Dosage: 10 MG, UID/QD
     Route: 048
     Dates: start: 20120220, end: 20120312
  6. NOVAMIN                            /00391002/ [Concomitant]
     Indication: PRODUCT USED FOR UNKNOWN INDICATION
     Dosage: 15 MG, UID/QD
     Route: 048
     Dates: start: 20120220, end: 20120101
  7. GEMCITABINE HYDROCHLORIDE [Suspect]
     Dosage: 1000 MG/M2, UID/QD
     Route: 041
     Dates: start: 20120313, end: 20120313
  8. GEMCITABINE HYDROCHLORIDE [Suspect]
     Dosage: UNK MG/M2, UID/QD
     Route: 065
     Dates: end: 20120319
  9. HIRUDOID                           /00723701/ [Concomitant]
     Indication: PRODUCT USED FOR UNKNOWN INDICATION
     Dosage: UNK
     Route: 003
     Dates: start: 20120207, end: 20120207
  10. HIRUDOID                           /00723701/ [Concomitant]
     Dosage: UNK
     Route: 003
     Dates: start: 20120329, end: 20120329
  11. MYSER                              /01249201/ [Concomitant]
     Indication: PRODUCT USED FOR UNKNOWN INDICATION
     Dosage: 1 DF, UID/QD
     Route: 003
     Dates: start: 20120214
  12. ERLOTINIB HYDROCHLORIDE [Suspect]
     Indication: ADENOCARCINOMA PANCREAS
     Dosage: 100 MG, UID/QD
     Route: 048
     Dates: start: 20120207, end: 20120319
  13. GEMCITABINE HYDROCHLORIDE [Suspect]
     Dosage: 1000 MG/M2, UID/QD
     Route: 041
     Dates: start: 20120306, end: 20120306
  14. LIPITOR [Concomitant]
     Indication: PRODUCT USED FOR UNKNOWN INDICATION
     Dosage: 10 MG, UID/QD
     Route: 048
     Dates: start: 20120221
  15. LOCOID [Concomitant]
     Indication: PRODUCT USED FOR UNKNOWN INDICATION
     Dosage: 1 DF, UID/QD
     Route: 003
     Dates: start: 20120214
  16. GEMCITABINE HYDROCHLORIDE [Suspect]
     Dosage: 1000 MG/M2, UID/QD
     Route: 041
     Dates: start: 20120214, end: 20120214
  17. OXINORM                            /00045603/ [Concomitant]
     Indication: PRODUCT USED FOR UNKNOWN INDICATION
     Dosage: 15 MG, UID/QD
     Route: 048
     Dates: start: 20120220, end: 20120312
  18. FAMOTIDINE [Concomitant]
     Indication: PRODUCT USED FOR UNKNOWN INDICATION
     Dosage: 40 MG, UID/QD
     Route: 048
     Dates: start: 20120201, end: 20120226
  19. GEMCITABINE HYDROCHLORIDE [Suspect]
     Indication: ADENOCARCINOMA PANCREAS
     Dosage: 1000 MG/M2, UID/QD
     Route: 041
     Dates: start: 20120207, end: 20120207
  20. LENDORMIN [Concomitant]
     Indication: PRODUCT USED FOR UNKNOWN INDICATION
     Dosage: 0.25 MG, UID/QD
     Route: 048
     Dates: start: 20120210, end: 20120224
  21. OMEPRAZOLE [Concomitant]
     Indication: PRODUCT USED FOR UNKNOWN INDICATION
     Dosage: 10 MG, UID/QD
     Route: 048
     Dates: start: 20120207, end: 20120222
  22. OXYCONTIN [Concomitant]
     Dosage: 20 MG, UID/QD
     Route: 048
     Dates: start: 20120313

REACTIONS (6)
  - FATIGUE [None]
  - DECREASED APPETITE [None]
  - ANAEMIA [None]
  - RASH [None]
  - NEUTROPHIL COUNT DECREASED [None]
  - NEOPLASM MALIGNANT [None]
